FAERS Safety Report 6152665-4 (Version None)
Quarter: 2009Q2

REPORT INFORMATION
  Report Type: 
  Country: None (occurrence: None)
  Receive Date: 20090413
  Receipt Date: 20090403
  Transmission Date: 20091009
  Serious: Yes (Other)
  Sender: FDA-Public Use
  Company Number: IN-ROCHE-624025

PATIENT
  Sex: Male
  Weight: 76 kg

DRUGS (7)
  1. MIRCERA [Suspect]
     Route: 042
  2. MIRCERA [Suspect]
     Dosage: DOSE INCREASED
     Route: 042
     Dates: start: 20081103
  3. ATENOLOL [Concomitant]
     Indication: HYPERTENSION
     Dosage: DRUG NAME REPORTED AS: ATEN
     Route: 048
  4. CALCICARD [Concomitant]
     Indication: HYPERTENSION
     Dosage: DRUG NAME REPORTED AS: CALCIGARD
     Route: 048
  5. ECOSPRIN [Concomitant]
     Indication: CORONARY ARTERY DISEASE
     Dosage: DRUG NAME REPORTED AS: ECOSPORIN
     Route: 048
  6. GLICLAZIDE [Concomitant]
     Indication: DIABETES MELLITUS
     Dosage: DRUG NAME REPORTED AS: RECLIDE
     Route: 048
  7. INSULIN [Concomitant]
     Indication: DIABETES MELLITUS
     Dosage: DOSAGE REGIMEN: 20 (AM)/ 10 (PM)
     Route: 058

REACTIONS (1)
  - VITREOUS HAEMORRHAGE [None]
